FAERS Safety Report 18710516 (Version 2)
Quarter: 2021Q1

REPORT INFORMATION
  Report Type: Spontaneous
  Country: US (occurrence: US)
  Receive Date: 20210107
  Receipt Date: 20210108
  Transmission Date: 20210419
  Serious: No
  Sender: FDA-Public Use
  Company Number: US-JNJFOC-20201235974

PATIENT
  Age: 23 Year
  Sex: Female
  Weight: 86.26 kg

DRUGS (1)
  1. WOMENS ROGAINE UNSCENTED [Suspect]
     Active Substance: MINOXIDIL
     Indication: ALOPECIA
     Dosage: HALF A CAPFUL?LAST USE DATE: 02?DEC?2020.
     Route: 061
     Dates: start: 20200902

REACTIONS (1)
  - Drug ineffective [Unknown]
